FAERS Safety Report 21970564 (Version 2)
Quarter: 2023Q1

REPORT INFORMATION
  Report Type: Spontaneous
  Country: US (occurrence: US)
  Receive Date: 20230209
  Receipt Date: 20230213
  Transmission Date: 20230418
  Serious: No
  Sender: FDA-Public Use
  Company Number: US-002147023-NVSC2023US027449

PATIENT
  Weight: 40.816 kg

DRUGS (1)
  1. CLOFAZIMINE [Suspect]
     Active Substance: CLOFAZIMINE
     Indication: Product used for unknown indication
     Dosage: 100 MG, QD
     Route: 048
     Dates: start: 20230113, end: 20230120

REACTIONS (2)
  - Tooth discolouration [Recovered/Resolved]
  - Gastrointestinal disorder [Recovered/Resolved]
